FAERS Safety Report 10056848 (Version 1)
Quarter: 2014Q2

REPORT INFORMATION
  Report Type: Spontaneous
  Country: US (occurrence: US)
  Receive Date: 20140403
  Receipt Date: 20140403
  Transmission Date: 20141212
  Serious: Yes (Other)
  Sender: FDA-Public Use
  Company Number: US-JNJFOC-20140315607

PATIENT
  Age: 32 Year
  Sex: Male

DRUGS (15)
  1. TOPIRAMATE [Suspect]
     Indication: EPILEPSY
     Route: 048
  2. PHENOBARBITAL [Suspect]
     Indication: EPILEPSY
     Route: 065
  3. PRIMIDONE [Suspect]
     Indication: EPILEPSY
     Route: 065
  4. PHENYTOIN [Suspect]
     Indication: EPILEPSY
     Route: 065
  5. LAMOTRIGINE [Suspect]
     Indication: EPILEPSY
     Route: 065
  6. LEVETIRACETAM [Suspect]
     Indication: EPILEPSY
     Route: 065
  7. ZONISAMIDE [Suspect]
     Indication: EPILEPSY
     Route: 065
  8. VIGABATRIN [Suspect]
     Indication: EPILEPSY
     Route: 065
  9. GABAPENTIN [Suspect]
     Indication: EPILEPSY
     Route: 065
  10. CARBAMAZEPINE [Suspect]
     Indication: EPILEPSY
     Route: 065
  11. PREGABALIN [Suspect]
     Indication: EPILEPSY
     Route: 065
  12. CLONAZEPAM [Suspect]
     Indication: EPILEPSY
     Route: 065
  13. VALPROIC ACID [Suspect]
     Indication: EPILEPSY
     Route: 065
  14. LACOSAMIDE [Suspect]
     Indication: EPILEPSY
     Route: 065
  15. RUFINAMIDE [Suspect]
     Indication: EPILEPSY
     Route: 065

REACTIONS (1)
  - Drug resistance [Unknown]
